FAERS Safety Report 15626818 (Version 1)
Quarter: 2018Q4

REPORT INFORMATION
  Report Type: Report from Study
  Country: AU (occurrence: AU)
  Receive Date: 20181116
  Receipt Date: 20181116
  Transmission Date: 20190205
  Serious: Yes (Hospitalization, Other)
  Sender: FDA-Public Use
  Company Number: AU-BAYER-2018-157745

PATIENT
  Age: 73 Year

DRUGS (10)
  1. STIVARGA [Suspect]
     Active Substance: REGORAFENIB
     Indication: HEPATOCELLULAR CARCINOMA
     Dosage: DAILY DOSE 160 MG (3 WEEKS THEN 1 WEEK OFF)
     Route: 048
     Dates: start: 20180827, end: 20181010
  2. COLOXYL WITH SENNA [Concomitant]
     Active Substance: DOCUSATE\SENNOSIDES
  3. FOLIC ACID. [Concomitant]
     Active Substance: FOLIC ACID
     Dosage: 500 ?G, QD
     Route: 048
  4. SENNA [Concomitant]
     Active Substance: SENNA LEAF\SENNOSIDES\SENNOSIDES A AND B
     Dosage: 2 DF, UNK
     Route: 048
  5. LEVOTHYROXINE. [Concomitant]
     Active Substance: LEVOTHYROXINE
     Dosage: 150 ?G, QD
     Route: 048
  6. DOCUSATE [Concomitant]
     Active Substance: DOCUSATE
     Dosage: 2 DF, UNK
  7. PANTOPRAZOLE [Concomitant]
     Active Substance: PANTOPRAZOLE
     Dosage: 40 MG, QD
     Route: 048
  8. NEXAVAR [Suspect]
     Active Substance: SORAFENIB
     Indication: HEPATOCELLULAR CARCINOMA
     Dosage: DAILY DOSE 400 MG
     Dates: end: 201802
  9. ATORVASTATIN [Concomitant]
     Active Substance: ATORVASTATIN
     Dosage: UNK
     Dates: end: 2018
  10. PRAZOSIN. [Concomitant]
     Active Substance: PRAZOSIN
     Dosage: UNK
     Dates: end: 2018

REACTIONS (15)
  - Transaminases increased [Recovered/Resolved]
  - Hepatitis [None]
  - Jaundice [None]
  - Abdominal pain upper [Not Recovered/Not Resolved]
  - Dilatation intrahepatic duct acquired [None]
  - Cardiomegaly [None]
  - Spinal osteoarthritis [None]
  - Blood albumin decreased [None]
  - Liver function test abnormal [Recovering/Resolving]
  - Hepatic pain [None]
  - Atelectasis [None]
  - Pyrexia [None]
  - Pleural effusion [None]
  - Granuloma [None]
  - Hepatocellular carcinoma [None]

NARRATIVE: CASE EVENT DATE: 201808
